FAERS Safety Report 6922166-1 (Version None)
Quarter: 2010Q3

REPORT INFORMATION
  Report Type: 
  Country: None (occurrence: None)
  Receive Date: 20100812
  Receipt Date: 20100802
  Transmission Date: 20110219
  Serious: Yes (Hospitalization)
  Sender: FDA-Public Use
  Company Number: SE-MERCK-1008SWE00005

PATIENT
  Age: 58 Year
  Sex: Male

DRUGS (5)
  1. ZOCOR [Suspect]
     Route: 048
     Dates: start: 20090101, end: 20091119
  2. AZATHIOPRINE [Suspect]
     Indication: COLITIS ULCERATIVE
     Route: 048
     Dates: start: 20060101, end: 20091105
  3. AZATHIOPRINE [Suspect]
     Route: 048
     Dates: start: 20090101, end: 20091125
  4. MESALAMINE [Concomitant]
     Route: 065
  5. METFORMIN [Concomitant]
     Route: 065

REACTIONS (2)
  - ABSCESS [None]
  - TRANSAMINASES INCREASED [None]
